FAERS Safety Report 4591849-3 (Version None)
Quarter: 2005Q1

REPORT INFORMATION
  Report Type: 
  Country: None (occurrence: None)
  Receive Date: 20050222
  Receipt Date: 20050207
  Transmission Date: 20050727
  Serious: Yes (Disabling, Other)
  Sender: FDA-Public Use
  Company Number: 2005026732

PATIENT
  Sex: Female

DRUGS (1)
  1. ZOLOFT [Suspect]
     Indication: ILL-DEFINED DISORDER

REACTIONS (10)
  - AGITATION [None]
  - ANXIETY [None]
  - CONFUSIONAL STATE [None]
  - DISTURBANCE IN ATTENTION [None]
  - FEMUR FRACTURE [None]
  - HAEMORRHAGE [None]
  - IMPAIRED WORK ABILITY [None]
  - INTENTIONAL SELF-INJURY [None]
  - MULTIPLE FRACTURES [None]
  - SCAR [None]
